FAERS Safety Report 14492163 (Version 2)
Quarter: 2021Q4

REPORT INFORMATION
  Report Type: Report from Study
  Country: FR (occurrence: FR)
  Receive Date: 20180206
  Receipt Date: 20211020
  Transmission Date: 20220303
  Serious: Yes (Other)
  Sender: FDA-Public Use
  Company Number: FR-SHIRE-FR201730083

PATIENT
  Sex: Female

DRUGS (26)
  1. METHOTREXATE [Suspect]
     Active Substance: METHOTREXATE
     Indication: Product used for unknown indication
     Dosage: 12 MILLIGRAM
     Route: 037
     Dates: start: 20170323
  2. METHOTREXATE [Suspect]
     Active Substance: METHOTREXATE
     Dosage: 5050 MG, UNK
     Route: 042
     Dates: start: 20170322, end: 20170322
  3. METHYLPREDNISOLONE [Suspect]
     Active Substance: METHYLPREDNISOLONE
     Indication: Acute lymphocytic leukaemia
     Dosage: 15 MG, UNK
     Route: 037
     Dates: start: 20170323
  4. PEGASPARGASE [Suspect]
     Active Substance: PEGASPARGASE
     Indication: Acute lymphocytic leukaemia
     Dosage: 1250 INTERNATIONAL UNIT, QD
     Route: 042
  5. MERCAPTOPURINE [Suspect]
     Active Substance: MERCAPTOPURINE
     Indication: Acute lymphocytic leukaemia
     Dosage: 24 MG, UNK
     Route: 048
     Dates: start: 20170315
  6. CYTARABINE [Suspect]
     Active Substance: CYTARABINE
     Indication: Acute lymphocytic leukaemia
     Dosage: 30 MG, UNK
     Route: 037
     Dates: start: 20170323
  7. ONDANSETRON [Concomitant]
     Active Substance: ONDANSETRON
     Indication: Nausea
     Dosage: 6 MG, UNK
     Route: 042
     Dates: start: 20170530, end: 20170530
  8. ONDANSETRON [Concomitant]
     Active Substance: ONDANSETRON
     Indication: Vomiting
     Dosage: UNK
  9. ONDANSETRON [Concomitant]
     Active Substance: ONDANSETRON
     Indication: Vomiting
  10. ESOMEPRAZOLE. [Concomitant]
     Active Substance: ESOMEPRAZOLE MAGNESIUM
     Indication: Gastrooesophageal reflux disease
     Dosage: 20 MG, UNK
     Route: 048
     Dates: start: 20161102, end: 20161102
  11. ESOMEPRAZOLE. [Concomitant]
     Active Substance: ESOMEPRAZOLE MAGNESIUM
     Indication: Nausea
     Dosage: 20 MG, UNK
     Route: 048
     Dates: start: 20161104, end: 20161121
  12. ESOMEPRAZOLE. [Concomitant]
     Active Substance: ESOMEPRAZOLE MAGNESIUM
     Indication: Nausea
     Dosage: UNK
  13. ESOMEPRAZOLE. [Concomitant]
     Active Substance: ESOMEPRAZOLE MAGNESIUM
     Indication: Vomiting
  14. ESOMEPRAZOLE. [Concomitant]
     Active Substance: ESOMEPRAZOLE MAGNESIUM
     Indication: Vomiting
  15. SALMETEROL [Concomitant]
     Active Substance: SALMETEROL
     Indication: Asthma
     Dosage: 250 ?G, UNK
     Route: 048
     Dates: start: 20161103
  16. HYDROXYZINE [Concomitant]
     Active Substance: HYDROXYZINE HYDROCHLORIDE
     Indication: Anxiety
     Dosage: 26 MG, UNK
     Route: 048
     Dates: start: 20161114, end: 20161114
  17. MONTELUKAST [Concomitant]
     Active Substance: MONTELUKAST SODIUM
     Indication: Asthma
     Dosage: 5 MG, UNK
     Route: 048
     Dates: start: 20161103
  18. RASBURICASE [Concomitant]
     Active Substance: RASBURICASE
     Indication: Acute kidney injury
     Dosage: 4.5 MG, QD
     Route: 042
     Dates: start: 20161102, end: 20161102
  19. ALIZAPRIDE [Concomitant]
     Active Substance: ALIZAPRIDE
     Indication: Nausea
     Dosage: 120 MG, UNK
     Route: 042
     Dates: start: 20161107, end: 20161113
  20. ALIZAPRIDE [Concomitant]
     Active Substance: ALIZAPRIDE
     Indication: Vomiting
     Dosage: UNK
  21. AMOXICILLIN [Concomitant]
     Active Substance: AMOXICILLIN
     Indication: Product used for unknown indication
     Dosage: 2100 MG, UNK
     Route: 042
     Dates: start: 20161103, end: 20161103
  22. ACETAMINOPHEN [Concomitant]
     Active Substance: ACETAMINOPHEN
     Indication: Pyrexia
     Dosage: UNK
  23. ACETAMINOPHEN [Concomitant]
     Active Substance: ACETAMINOPHEN
     Indication: Pain
  24. LEVOCARNITINE [Concomitant]
     Active Substance: LEVOCARNITINE
     Indication: Product used for unknown indication
     Dosage: 20 ML, UNK
     Route: 048
     Dates: start: 20161114
  25. LACTULOSE [Concomitant]
     Active Substance: LACTULOSE
     Indication: Constipation
     Dosage: 5 ML, UNK
     Route: 048
     Dates: start: 20161103, end: 20161122
  26. POLYETHYLENE GLYCOLS [Concomitant]
     Active Substance: POLYETHYLENE GLYCOLS
     Indication: Constipation
     Dosage: UNK
     Route: 048
     Dates: start: 20160911, end: 20161211

REACTIONS (2)
  - Medication error [Recovered/Resolved]
  - Hepatic enzyme increased [Recovered/Resolved]

NARRATIVE: CASE EVENT DATE: 20170331
